FAERS Safety Report 4616652-7 (Version None)
Quarter: 2005Q2

REPORT INFORMATION
  Report Type: 
  Country: None (occurrence: None)
  Receive Date: 20050311
  Receipt Date: 20050111
  Transmission Date: 20051028
  Serious: No
  Sender: FDA-Public Use
  Company Number: 2005-00037

PATIENT
  Age: 77 Year
  Sex: Female
  Weight: 54.4 kg

DRUGS (1)
  1. VELCADE [Suspect]
     Indication: MULTIPLE MYELOMA
     Dosage: INTRAVENOUS
     Route: 042
     Dates: start: 20050111

REACTIONS (2)
  - NAUSEA [None]
  - STOMACH DISCOMFORT [None]
